FAERS Safety Report 11661902 (Version 2)
Quarter: 2020Q2

REPORT INFORMATION
  Report Type: Report from Study
  Country: AU (occurrence: AU)
  Receive Date: 20151026
  Receipt Date: 20200515
  Transmission Date: 20200713
  Serious: Yes (Other)
  Sender: FDA-Public Use
  Company Number: AU-JNJFOC-20151014436

PATIENT
  Age: 40 Year
  Sex: Female

DRUGS (3)
  1. REMICADE [Suspect]
     Active Substance: INFLIXIMAB
     Route: 042
     Dates: start: 20151019
  2. REMICADE [Suspect]
     Active Substance: INFLIXIMAB
     Indication: SARCOIDOSIS
     Route: 042
     Dates: start: 20150831
  3. PREDNISONE. [Concomitant]
     Active Substance: PREDNISONE
     Route: 065

REACTIONS (6)
  - Lymphadenectomy [Recovered/Resolved]
  - Product use in unapproved indication [Unknown]
  - Tonsillitis [Recovered/Resolved]
  - Brain neoplasm benign [Recovered/Resolved]
  - Off label use [Unknown]
  - Benign spleen tumour [Recovered/Resolved]

NARRATIVE: CASE EVENT DATE: 20150831
